FAERS Safety Report 14276579 (Version 5)
Quarter: 2018Q2

REPORT INFORMATION
  Report Type: Report from Study
  Country: None (occurrence: CA)
  Receive Date: 20171212
  Receipt Date: 20180504
  Transmission Date: 20180711
  Serious: Yes (Other)
  Sender: FDA-Public Use
  Company Number: CA-ABBVIE-17K-028-2188670-00

PATIENT
  Sex: Female

DRUGS (4)
  1. HUMIRA [Suspect]
     Active Substance: ADALIMUMAB
     Indication: CROHN^S DISEASE
     Route: 058
     Dates: start: 20170427, end: 20171208
  2. CIPROFLOXACIN. [Suspect]
     Active Substance: CIPROFLOXACIN
     Indication: INFECTED FISTULA
     Route: 048
     Dates: start: 20180418
  3. METRONIDAZOLE. [Suspect]
     Active Substance: METRONIDAZOLE
     Indication: INFECTED FISTULA
     Route: 048
     Dates: start: 20180418
  4. HUMIRA [Suspect]
     Active Substance: ADALIMUMAB
     Route: 058
     Dates: start: 20171209

REACTIONS (12)
  - Fistula [Not Recovered/Not Resolved]
  - Gastric disorder [Not Recovered/Not Resolved]
  - Device breakage [Unknown]
  - Rectal tube insertion [Unknown]
  - Device dislocation [Not Recovered/Not Resolved]
  - Drug ineffective [Not Recovered/Not Resolved]
  - Abdominal pain [Unknown]
  - Device dislocation [Unknown]
  - Medical device site pain [Not Recovered/Not Resolved]
  - Abdominal mass [Not Recovered/Not Resolved]
  - Catheter site inflammation [Not Recovered/Not Resolved]
  - Infected fistula [Not Recovered/Not Resolved]

NARRATIVE: CASE EVENT DATE: 2017
